FAERS Safety Report 8122439-3 (Version None)
Quarter: 2012Q1

REPORT INFORMATION
  Report Type: 
  Country: None (occurrence: None)
  Receive Date: 20120207
  Receipt Date: 20120207
  Transmission Date: 20120608
  Serious: Yes (Other)
  Sender: FDA-Public Use
  Company Number: None

PATIENT
  Age: 63 Year
  Sex: Female

DRUGS (3)
  1. MIRAPEX [Concomitant]
  2. SAVELLA [Suspect]
     Dosage: 25 MG PO DAILY
     Route: 048
  3. AMBIEN [Concomitant]

REACTIONS (3)
  - DYSPNOEA [None]
  - NAUSEA [None]
  - PALPITATIONS [None]
